FAERS Safety Report 8097248-4 (Version None)
Quarter: 2012Q1

REPORT INFORMATION
  Report Type: 
  Country: None (occurrence: None)
  Receive Date: 20120128
  Receipt Date: 20110807
  Transmission Date: 20120608
  Serious: No
  Sender: FDA-Public Use
  Company Number: US-ABBOTT-11P-163-0730666-00

PATIENT
  Sex: Female

DRUGS (18)
  1. METHOTREXATE [Concomitant]
     Indication: PSORIASIS
  2. ESTRA C + CALCIUM [Concomitant]
     Indication: PRODUCT USED FOR UNKNOWN INDICATION
  3. FOLIC ACID [Concomitant]
     Indication: PRODUCT USED FOR UNKNOWN INDICATION
  4. HUMIRA [Suspect]
     Indication: PSORIATIC ARTHROPATHY
     Dates: start: 20110501
  5. METFORMIN HCL [Concomitant]
     Indication: BLOOD GLUCOSE ABNORMAL
  6. VITAMIN B-12 [Concomitant]
     Indication: PRODUCT USED FOR UNKNOWN INDICATION
  7. BENICAR [Concomitant]
     Indication: HYPERTENSION
     Dosage: 40/25MG
  8. WELLBUTRIN [Concomitant]
     Indication: PRODUCT USED FOR UNKNOWN INDICATION
     Dosage: 1 IN AM AND 1/2 AT HS
  9. METHOTREXATE [Concomitant]
     Indication: PSORIATIC ARTHROPATHY
  10. NEXIUM [Concomitant]
     Indication: OESOPHAGEAL STENOSIS
  11. CRESTOR [Concomitant]
     Indication: BLOOD CHOLESTEROL INCREASED
  12. FISH OIL [Concomitant]
     Indication: PRODUCT USED FOR UNKNOWN INDICATION
  13. TOPROL-XL [Concomitant]
     Indication: PRODUCT USED FOR UNKNOWN INDICATION
  14. NAPROXEN (ALEVE) [Concomitant]
     Indication: PRODUCT USED FOR UNKNOWN INDICATION
  15. CLOBESTOL [Concomitant]
     Indication: PSORIASIS
  16. MULTI-VITAMINS [Concomitant]
     Indication: PRODUCT USED FOR UNKNOWN INDICATION
  17. MAGNESIUM [Concomitant]
     Indication: PRODUCT USED FOR UNKNOWN INDICATION
  18. ALLEGRA [Concomitant]
     Indication: PRODUCT USED FOR UNKNOWN INDICATION

REACTIONS (13)
  - ARTHRALGIA [None]
  - OROPHARYNGEAL PAIN [None]
  - DRUG INEFFECTIVE [None]
  - GAIT DISTURBANCE [None]
  - GENERALISED OEDEMA [None]
  - DRUG DOSE OMISSION [None]
  - PSORIASIS [None]
  - INJECTION SITE PAIN [None]
  - PARANASAL SINUS HYPERSECRETION [None]
  - BACK PAIN [None]
  - RHINORRHOEA [None]
  - NASAL CONGESTION [None]
  - IRITIS [None]
